FAERS Safety Report 5723681-9 (Version None)
Quarter: 2008Q2

REPORT INFORMATION
  Report Type: 
  Country: None (occurrence: None)
  Receive Date: 20080428
  Receipt Date: 20080418
  Transmission Date: 20081010
  Serious: Yes (Hospitalization)
  Sender: FDA-Public Use
  Company Number: 2008AL002371

PATIENT
  Age: 53 Year
  Sex: Female

DRUGS (7)
  1. FLUOXETINE [Suspect]
     Indication: FATIGUE
     Dosage: 40 MG; QD
  2. INTERFERON BETA [Concomitant]
  3. MODAFINIL [Concomitant]
  4. AMANTADINE HCL [Concomitant]
  5. OXYBUTYNIN CHLORIDE [Concomitant]
  6. LEVOTHYROXINE SODIUM [Concomitant]
  7. BACLOFEN [Concomitant]

REACTIONS (9)
  - ABNORMAL DREAMS [None]
  - DELIRIUM [None]
  - DEPERSONALISATION [None]
  - DIARRHOEA [None]
  - DISORIENTATION [None]
  - HEADACHE [None]
  - INFLUENZA LIKE ILLNESS [None]
  - PYREXIA [None]
  - TREATMENT NONCOMPLIANCE [None]
